FAERS Safety Report 7927921-7 (Version None)
Quarter: 2011Q4

REPORT INFORMATION
  Report Type: 
  Country: None (occurrence: None)
  Receive Date: 20111118
  Receipt Date: 20111021
  Transmission Date: 20120403
  Serious: No
  Sender: FDA-Public Use
  Company Number: US-BAYER-2011-103384

PATIENT
  Sex: Female

DRUGS (3)
  1. CLIMARA [Suspect]
     Dosage: 25 ?G/D, CONT
     Route: 062
  2. PROGESTIN INJ [Concomitant]
  3. CLIMARA [Suspect]
     Dosage: 25 ?G/D, CONT
     Route: 062

REACTIONS (1)
  - HOT FLUSH [None]
